FAERS Safety Report 8198315 (Version 3)
Quarter: 2013Q1

REPORT INFORMATION
  Report Type: Spontaneous
  Country: CA (occurrence: CA)
  Receive Date: 20111025
  Receipt Date: 20130228
  Transmission Date: 20140127
  Serious: Yes (Other)
  Sender: FDA-Public Use
  Company Number: CA-PFIZER INC-2011254857

PATIENT
  Age: 48 Year
  Sex: Female
  Weight: 70.3 kg

DRUGS (4)
  1. CHAMPIX [Suspect]
     Indication: SMOKING CESSATION THERAPY
     Dosage: 0.5 MG, DAILY
     Route: 048
     Dates: start: 201110, end: 20111019
  2. TYLENOL 3 [Concomitant]
     Indication: BACK PAIN
     Dosage: 2 DF, EVERY FOUR HOURS AS NEEDED
     Dates: start: 2008
  3. NAPROXEN [Concomitant]
     Indication: BACK PAIN
     Dosage: 1 DF, AS NEEDED
     Dates: start: 20110617
  4. CANNABIS [Concomitant]
     Dosage: UNK, 1X/DAY
     Dates: start: 1969

REACTIONS (10)
  - Homicidal ideation [Recovered/Resolved]
  - Decreased interest [Recovered/Resolved]
  - Crying [Recovered/Resolved]
  - Mood swings [Recovered/Resolved]
  - Feeling abnormal [Recovered/Resolved]
  - Indifference [Recovered/Resolved]
  - Depressed mood [Recovered/Resolved]
  - Amnesia [Recovered/Resolved]
  - Eye oedema [Recovered/Resolved]
  - Tobacco user [Unknown]
